FAERS Safety Report 15155227 (Version 1)
Quarter: 2018Q3

REPORT INFORMATION
  Report Type: Spontaneous
  Country: ES (occurrence: ES)
  Receive Date: 20180717
  Receipt Date: 20180717
  Transmission Date: 20181010
  Serious: Yes (Hospitalization)
  Sender: FDA-Public Use
  Company Number: ES-SA-2018SA182396

PATIENT
  Age: 36 Year
  Sex: Female

DRUGS (1)
  1. ENOXAPARIN SODIUM. [Suspect]
     Active Substance: ENOXAPARIN SODIUM
     Indication: HAEMODIALYSIS
     Route: 058
     Dates: start: 20170928, end: 20171018

REACTIONS (1)
  - Platelet disorder [Recovered/Resolved]

NARRATIVE: CASE EVENT DATE: 20171018
